FAERS Safety Report 8032902-1 (Version None)
Quarter: 2012Q1

REPORT INFORMATION
  Report Type: 
  Country: None (occurrence: None)
  Receive Date: 20120110
  Receipt Date: 20120104
  Transmission Date: 20120608
  Serious: No
  Sender: FDA-Public Use
  Company Number: US-BAYER-2012-002335

PATIENT

DRUGS (3)
  1. ALEVE (CAPLET) [Suspect]
     Dosage: 2 TAB MIDOL, UNK
     Route: 048
  2. ALEVE (CAPLET) [Suspect]
     Dosage: 500 MG ALEVE
  3. ASPIRIN [Suspect]
     Dosage: 3 TABLET,
     Route: 048

REACTIONS (1)
  - PAIN [None]
